FAERS Safety Report 19288786 (Version 1)
Quarter: 2021Q2

REPORT INFORMATION
  Report Type: Spontaneous
  Country: KR (occurrence: KR)
  Receive Date: 20210521
  Receipt Date: 20210521
  Transmission Date: 20210717
  Serious: Yes (Death, Other)
  Sender: FDA-Public Use
  Company Number: KR-GLAXOSMITHKLINE-KR2021APC106213

PATIENT
  Age: 53 Year
  Sex: Female

DRUGS (2)
  1. ZEFFIX [Suspect]
     Active Substance: LAMIVUDINE
     Indication: HEPATITIS VIRAL
     Dosage: 100 MG
     Route: 048
  2. ADEFOVIR DIPIVOXIL. [Suspect]
     Active Substance: ADEFOVIR DIPIVOXIL
     Indication: PRODUCT USED FOR UNKNOWN INDICATION
     Dosage: UNK

REACTIONS (2)
  - Hepatic failure [Fatal]
  - Withdrawal syndrome [Fatal]
